FAERS Safety Report 19911265 (Version 1)
Quarter: 2021Q3

REPORT INFORMATION
  Report Type: Spontaneous
  Country: US (occurrence: US)
  Receive Date: 20210930
  Receipt Date: 20210930
  Transmission Date: 20211014
  Serious: Yes (Other)
  Sender: FDA-Public Use
  Company Number: None

PATIENT
  Age: 64 Year
  Sex: Female
  Weight: 103.87 kg

DRUGS (2)
  1. DULOXETINE 30MG [Suspect]
     Active Substance: DULOXETINE
     Indication: ANXIETY
     Dosage: 20MG QAM IRAKKT??AWAITING PA
     Route: 048
     Dates: start: 20210717
  2. DULOXETINE 20MG [Suspect]
     Active Substance: DULOXETINE
     Indication: ANXIETY
     Dosage: 30MG WHS ORALLY??STOP: AWAITING PA
     Dates: start: 20210616

REACTIONS (1)
  - Pustule [None]

NARRATIVE: CASE EVENT DATE: 20210716
